FAERS Safety Report 5936052-7 (Version None)
Quarter: 2008Q4

REPORT INFORMATION
  Report Type: 
  Country: None (occurrence: None)
  Receive Date: 20081028
  Receipt Date: 20081023
  Transmission Date: 20090506
  Serious: No
  Sender: FDA-Public Use
  Company Number: 2008JP004561

PATIENT
  Age: 39 Year
  Sex: Male

DRUGS (4)
  1. PROGRAF [Suspect]
     Indication: BONE MARROW TRANSPLANT
  2. PREDNISONE [Concomitant]
  3. CYCLOSPORINE [Concomitant]
  4. STEROID [Concomitant]

REACTIONS (2)
  - CEREBROVASCULAR DISORDER [None]
  - THROMBOTIC MICROANGIOPATHY [None]
